FAERS Safety Report 7531080-2 (Version None)
Quarter: 2011Q2

REPORT INFORMATION
  Report Type: 
  Country: None (occurrence: None)
  Receive Date: 20110531
  Receipt Date: 20110516
  Transmission Date: 20111010
  Serious: Yes (Disabling)
  Sender: FDA-Public Use
  Company Number: 2011AP000997

PATIENT
  Age: 64 Year
  Sex: Female

DRUGS (11)
  1. DOXAZOSIN MESYLATE [Concomitant]
  2. ESTRADIAL [Concomitant]
  3. PARAFFIN SOFT [Concomitant]
  4. GLYCEROL 2.6% [Concomitant]
  5. DYDROGESTERONE TAB [Concomitant]
  6. CARMELLOSE SODIUM [Concomitant]
  7. SYSTANE (RHINARIS) [Concomitant]
  8. DICLOFENAC POTASSIUM [Concomitant]
  9. LOSARTAN POTASSIUM [Suspect]
     Indication: PRODUCT USED FOR UNKNOWN INDICATION
  10. DOXYCYCLINE [Concomitant]
  11. PARAFFIN, LIQUID (PARAFFIN, LIQUID) [Concomitant]

REACTIONS (1)
  - DRY EYE [None]
